FAERS Safety Report 26041473 (Version 1)
Quarter: 2025Q4

REPORT INFORMATION
  Report Type: Report from Study
  Country: EU (occurrence: EU)
  Receive Date: 20251113
  Receipt Date: 20251113
  Transmission Date: 20260117
  Serious: Yes (Hospitalization)
  Sender: ABBVIE
  Company Number: EU-ABBVIE-6544662

PATIENT
  Age: 36 Year
  Sex: Male
  Weight: 135 kg

DRUGS (2)
  1. SKYRIZI [Suspect]
     Active Substance: RISANKIZUMAB-RZAA
     Indication: Psoriasis
     Route: 058
     Dates: start: 20200903
  2. WEGOVY [Concomitant]
     Active Substance: SEMAGLUTIDE
     Indication: Body fat disorder
     Route: 058
     Dates: start: 20240816

REACTIONS (1)
  - Nephrolithiasis [Recovered/Resolved]

NARRATIVE: CASE EVENT DATE: 20241026
